FAERS Safety Report 15678105 (Version 1)
Quarter: 2018Q4

REPORT INFORMATION
  Report Type: Report from Study
  Country: CH (occurrence: CH)
  Receive Date: 20181201
  Receipt Date: 20181201
  Transmission Date: 20190205
  Serious: Yes (Death, Other)
  Sender: FDA-Public Use
  Company Number: CH-TEVA-2018-CH-976974

PATIENT
  Age: 8 Decade
  Sex: Female

DRUGS (17)
  1. THALIDOMIDE [Suspect]
     Active Substance: THALIDOMIDE
     Indication: PLASMA CELL MYELOMA
     Dosage: UNK, CYCLIC (1 CYCLE)
     Route: 065
     Dates: start: 20150108
  2. THALIDOMIDE [Suspect]
     Active Substance: THALIDOMIDE
     Dosage: 50 MILLIGRAM DAILY; 50 MG, ONCE DAILY (MAINTENANCE THERAPY)
     Route: 065
     Dates: start: 20150702, end: 20151124
  3. DEXAMETHASONE. [Suspect]
     Active Substance: DEXAMETHASONE
     Dosage: UNK UNK, UNKNOWN FREQ. (DAY 1 TO 4)
     Route: 065
     Dates: start: 20150216, end: 20150504
  4. THALIDOMIDE [Suspect]
     Active Substance: THALIDOMIDE
     Dosage: 50 MILLIGRAM DAILY;
     Route: 065
     Dates: start: 20150216, end: 20150504
  5. THALIDOMIDE [Suspect]
     Active Substance: THALIDOMIDE
     Dosage: UNK, CYCLIC (4 CYCLES)
     Route: 065
     Dates: start: 20160609, end: 20160822
  6. BENDAMUSTINE HYDROCHLORIDE. [Suspect]
     Active Substance: BENDAMUSTINE HYDROCHLORIDE
     Indication: PLASMA CELL MYELOMA
     Dosage: UNK UNK, CYCLIC (3.5 CYCLES)
     Route: 042
     Dates: start: 20151210, end: 20160331
  7. ENDOXAN                            /00021101/ [Suspect]
     Active Substance: CYCLOPHOSPHAMIDE
     Indication: PLASMA CELL MYELOMA
     Dosage: 400 MG, UNKNOWN FREQ. (DAY 1 TO 4)
     Route: 065
     Dates: start: 20150216, end: 20150304
  8. ETOPOSIDE. [Suspect]
     Active Substance: ETOPOSIDE
     Dosage: UNK, CYCLIC (4 CYCLES)
     Route: 065
     Dates: start: 20160609, end: 20160822
  9. DEXAMETHASONE. [Suspect]
     Active Substance: DEXAMETHASONE
     Dosage: UNK UNK, ONCE WEEKLY
     Route: 065
     Dates: start: 20151210, end: 20160331
  10. DEXAMETHASONE. [Suspect]
     Active Substance: DEXAMETHASONE
     Dosage: UNK UNK, CYCLIC (1.5 CYCLE)
     Route: 065
     Dates: start: 20160428, end: 20160530
  11. VELCADE [Suspect]
     Active Substance: BORTEZOMIB
     Dosage: UNK, CYCLIC (1.5 CYCLE)
     Route: 065
     Dates: start: 20160428, end: 20160530
  12. ENDOXAN                            /00021101/ [Suspect]
     Active Substance: CYCLOPHOSPHAMIDE
     Dosage: UNK UNK, CYCLIC (1.5 CYCLE)
     Route: 065
     Dates: start: 20160428, end: 20160530
  13. VELCADE [Suspect]
     Active Substance: BORTEZOMIB
     Indication: PLASMA CELL MYELOMA
     Dosage: UNK, CYCLIC (1 CYCLE)
     Route: 065
     Dates: start: 20150108
  14. ENDOXAN                            /00021101/ [Suspect]
     Active Substance: CYCLOPHOSPHAMIDE
     Dosage: UNK UNK, CYCLIC (4 CYCLES)
     Route: 065
     Dates: start: 20160109, end: 20160822
  15. ETOPOSIDE. [Suspect]
     Active Substance: ETOPOSIDE
     Indication: PLASMA CELL MYELOMA
     Dosage: 40 MG, UNKNOWN FREQ. (DAY 1 TO 4)
     Route: 065
     Dates: start: 20150216, end: 20150504
  16. DEXAMETHASONE. [Suspect]
     Active Substance: DEXAMETHASONE
     Indication: PLASMA CELL MYELOMA
     Dosage: UNK, CYCLIC (1 CYCLE)
     Route: 065
     Dates: start: 20150108
  17. DEXAMETHASONE. [Suspect]
     Active Substance: DEXAMETHASONE
     Dosage: UNK UNK, CYCLIC (4 CYCLES)
     Route: 065
     Dates: start: 20160609, end: 20160822

REACTIONS (5)
  - Plasma cell myeloma [Fatal]
  - Monoclonal immunoglobulin present [Unknown]
  - Product use issue [Unknown]
  - Off label use [Unknown]
  - Drug ineffective [Unknown]

NARRATIVE: CASE EVENT DATE: 201501
